FAERS Safety Report 24895487 (Version 1)
Quarter: 2025Q1

REPORT INFORMATION
  Report Type: Spontaneous
  Country: US (occurrence: None)
  Receive Date: 20250128
  Receipt Date: 20250128
  Transmission Date: 20250409
  Serious: Yes (Disabling)
  Sender: FDA-CTU
  Company Number: None

PATIENT
  Age: 32 Year
  Sex: Male
  Weight: 72.9 kg

DRUGS (2)
  1. ESCITALOPRAM [Suspect]
     Active Substance: ESCITALOPRAM OXALATE
     Indication: Anxiety
     Dates: start: 20220507, end: 20220520
  2. TRAZODONE [Suspect]
     Active Substance: TRAZODONE HYDROCHLORIDE

REACTIONS (10)
  - Fatigue [None]
  - Sleep disorder [None]
  - Depersonalisation/derealisation disorder [None]
  - Insomnia [None]
  - Emotional disorder [None]
  - Male orgasmic disorder [None]
  - Erectile dysfunction [None]
  - Dyskinesia [None]
  - Dry skin [None]
  - Reduced bladder capacity [None]

NARRATIVE: CASE EVENT DATE: 20220520
